FAERS Safety Report 4429047-6 (Version None)
Quarter: 2004Q3

REPORT INFORMATION
  Report Type: 
  Country: None (occurrence: None)
  Receive Date: 20040818
  Receipt Date: 20040813
  Transmission Date: 20050211
  Serious: Yes (Disabling)
  Sender: FDA-Public Use
  Company Number: US-MERCK-0408USA01188

PATIENT
  Age: 62 Year
  Sex: Female

DRUGS (2)
  1. FOSAMAX [Suspect]
     Route: 048
     Dates: start: 19960101, end: 20040101
  2. ESTROGENS (UNSPECIFIED) [Concomitant]
     Route: 065
     Dates: start: 19960101, end: 20030101

REACTIONS (2)
  - FRACTURE NONUNION [None]
  - HIP FRACTURE [None]
